FAERS Safety Report 8839621 (Version 1)
Quarter: 2012Q4

REPORT INFORMATION
  Report Type: 
  Country: US (occurrence: US)
  Receive Date: 20121015
  Receipt Date: 20121015
  Transmission Date: 20130627
  Serious: Yes (Hospitalization)
  Sender: FDA-Public Use
  Company Number: US-BAYER-2012-105330

PATIENT
  Age: 43 Year
  Sex: Female
  Weight: 109.75 kg

DRUGS (11)
  1. YAZ [Suspect]
     Indication: MENOMETRORRHAGIA
  2. ACIPHEX [Concomitant]
     Dosage: 20 mg, UNK
     Route: 048
  3. AZITHROMYCIN [Concomitant]
     Dosage: 250 mg, UNK
     Route: 048
  4. METFORMIN HCL [Concomitant]
     Dosage: 1000 mg, UNK
     Route: 048
  5. ATIVAN [Concomitant]
     Indication: MUSCLE SPASMS
     Dosage: 0.5 mg [one], BID
     Route: 048
     Dates: start: 20090112
  6. ATIVAN [Concomitant]
     Indication: PAIN
  7. MOTRIN [Concomitant]
     Indication: PAIN
     Dosage: 800 mg, [one] bid/tid (twice daily) prn
     Route: 048
     Dates: start: 20090112
  8. MOTRIN [Concomitant]
     Indication: INFLAMMATION
  9. VICODIN [Concomitant]
     Indication: PAIN
     Dosage: [one] [every] 4 [hours] prn
     Route: 048
     Dates: start: 20090112
  10. ULTRAM [Concomitant]
     Dosage: UNK UNK, QID
  11. ALLEGRA-D 24 HOUR [Concomitant]

REACTIONS (1)
  - Deep vein thrombosis [None]
